FAERS Safety Report 12871121 (Version 1)
Quarter: 2016Q4

REPORT INFORMATION
  Report Type: Spontaneous
  Country: US (occurrence: US)
  Receive Date: 20161021
  Receipt Date: 20161021
  Transmission Date: 20170207
  Serious: No
  Sender: FDA-Public Use
  Company Number: None

PATIENT

DRUGS (2)
  1. TIGAN [Suspect]
     Active Substance: TRIMETHOBENZAMIDE HYDROCHLORIDE
  2. PROMETHAZINE HCL PROMETHAZINE 25MG/ML [Suspect]
     Active Substance: PROMETHAZINE HYDROCHLORIDE
     Dosage: DEEP IM OR IV USE
     Route: 030

REACTIONS (1)
  - Incorrect route of drug administration [None]
